FAERS Safety Report 18843301 (Version 1)
Quarter: 2021Q1

REPORT INFORMATION
  Report Type: Spontaneous
  Country: US (occurrence: US)
  Receive Date: 20210204
  Receipt Date: 20210204
  Transmission Date: 20210419
  Serious: Yes (Other)
  Sender: FDA-Public Use
  Company Number: US-ASTRAZENECA-2021A023800

PATIENT

DRUGS (1)
  1. TAGRISSO [Suspect]
     Active Substance: OSIMERTINIB
     Indication: ELECTROCARDIOGRAM QT PROLONGED
     Route: 048

REACTIONS (4)
  - Eye swelling [Unknown]
  - Eye pain [Unknown]
  - Ocular hyperaemia [Unknown]
  - Keratitis [Unknown]
